FAERS Safety Report 8840780 (Version 1)
Quarter: 2012Q4

REPORT INFORMATION
  Report Type: 
  Country: US (occurrence: US)
  Receive Date: 20121015
  Receipt Date: 20121015
  Transmission Date: 20130627
  Serious: No
  Sender: FDA-Public Use
  Company Number: US-BAYER-2012-105964

PATIENT

DRUGS (3)
  1. ALEVE CAPLET/TABLET,MIDOL EXTENDED RELIEF CAPLET [Suspect]
     Indication: ANALGESIC THERAPY
     Dosage: 3 UNK, UNK
  2. BENEDRYL [Concomitant]
  3. LUNESTA [Concomitant]

REACTIONS (3)
  - Pain [None]
  - Insomnia [None]
  - Eye pruritus [None]
